FAERS Safety Report 10005190 (Version 2)
Quarter: 2014Q1

REPORT INFORMATION
  Report Type: Spontaneous
  Country: US (occurrence: US)
  Receive Date: 20140312
  Receipt Date: 20140318
  Transmission Date: 20141002
  Serious: Yes (Other)
  Sender: FDA-Public Use
  Company Number: US-BAYER-2014-036396

PATIENT
  Age: 17 Year
  Sex: Female
  Weight: 48.6 kg

DRUGS (4)
  1. MIRENA [Suspect]
     Indication: CONTRACEPTION
     Dosage: 20 MCG/24HR, CONT
     Route: 015
     Dates: start: 20131227, end: 20140207
  2. IRON [Concomitant]
     Dosage: 325 MG, QD
     Route: 048
  3. LORTAB [Concomitant]
     Indication: HEADACHE
     Dosage: 1 PO Q 6HS PRN
     Route: 048
  4. PROMETHAZINE [Concomitant]
     Indication: NAUSEA
     Dosage: 1 PO Q 4HS PRN
     Route: 048

REACTIONS (7)
  - Pelvic inflammatory disease [Recovered/Resolved]
  - Abdominal pain lower [Recovered/Resolved]
  - Pyrexia [Recovered/Resolved]
  - Abdominal pain [None]
  - Back pain [None]
  - Vaginal haemorrhage [None]
  - Vaginal discharge [None]
